FAERS Safety Report 6543790-4 (Version None)
Quarter: 2010Q1

REPORT INFORMATION
  Report Type: 
  Country: None (occurrence: None)
  Receive Date: 20100120
  Receipt Date: 20081205
  Transmission Date: 20100710
  Serious: Yes (Other)
  Sender: FDA-Public Use
  Company Number: US-PFIZER INC-2009151422

PATIENT
  Sex: Male

DRUGS (1)
  1. BEXTRA [Suspect]

REACTIONS (2)
  - DRUG HYPERSENSITIVITY [None]
  - HYPERSENSITIVITY [None]
